FAERS Safety Report 4602341-1 (Version None)
Quarter: 2005Q2

REPORT INFORMATION
  Report Type: 
  Country: None (occurrence: None)
  Receive Date: 20050223
  Receipt Date: 20041112
  Transmission Date: 20051028
  Serious: No
  Sender: FDA-Public Use
  Company Number: 210189

PATIENT
  Age: 57 Year
  Sex: Female
  Weight: 93.4 kg

DRUGS (2)
  1. RAPTIVA [Suspect]
     Indication: PSORIASIS
     Dosage: 0.9 ML, 1/WEEK, SUBCUTANEOUS
     Route: 058
     Dates: end: 20041101
  2. THYROXIN (LEVOTHYROXINE SODIUM) [Concomitant]

REACTIONS (1)
  - URTICARIA GENERALISED [None]
